FAERS Safety Report 5996026-7 (Version None)
Quarter: 2008Q4

REPORT INFORMATION
  Report Type: 
  Country: None (occurrence: None)
  Receive Date: 20081212
  Receipt Date: 20081008
  Transmission Date: 20090506
  Serious: No
  Sender: FDA-Public Use
  Company Number: US-ABBOTT-08P-163-0480454-00

PATIENT
  Sex: Female
  Weight: 49.032 kg

DRUGS (7)
  1. HUMIRA [Suspect]
     Indication: CROHN'S DISEASE
     Dosage: LOADING DOSE
     Route: 058
     Dates: start: 20080904, end: 20080904
  2. HUMIRA [Suspect]
     Route: 058
     Dates: start: 20080917, end: 20080917
  3. HUMIRA [Suspect]
     Route: 058
     Dates: start: 20081001, end: 20081001
  4. HUMIRA [Suspect]
     Route: 058
  5. PREDNISONE TAB [Concomitant]
     Indication: CROHN'S DISEASE
     Route: 048
     Dates: start: 20080825
  6. CALCIUM-SANDOZ [Concomitant]
     Indication: MINERAL SUPPLEMENTATION
     Route: 048
     Dates: start: 20080801
  7. ACYCLOVIR SODIUM [Concomitant]
     Indication: EAR INFECTION
     Route: 048
     Dates: start: 20080915

REACTIONS (2)
  - ACCIDENTAL OVERDOSE [None]
  - EAR INFECTION [None]
